FAERS Safety Report 20879371 (Version 1)
Quarter: 2022Q2

REPORT INFORMATION
  Report Type: Spontaneous
  Country: US (occurrence: US)
  Receive Date: 20220526
  Receipt Date: 20220526
  Transmission Date: 20220721
  Serious: No
  Sender: FDA-Public Use
  Company Number: US-RADIUS HEALTH INC.-2021US004254

PATIENT
  Sex: Female

DRUGS (3)
  1. TYMLOS [Suspect]
     Active Substance: ABALOPARATIDE
     Indication: Senile osteoporosis
     Dosage: 80 MCG, QD
     Route: 058
  2. TYMLOS [Suspect]
     Active Substance: ABALOPARATIDE
     Indication: Polyarthritis
  3. TYMLOS [Suspect]
     Active Substance: ABALOPARATIDE
     Indication: Systemic lupus erythematosus

REACTIONS (3)
  - Chest discomfort [Unknown]
  - Sensory disturbance [Unknown]
  - Headache [Unknown]
